FAERS Safety Report 25075076 (Version 1)
Quarter: 2025Q1

REPORT INFORMATION
  Report Type: Report from Study
  Country: US (occurrence: US)
  Receive Date: 20250313
  Receipt Date: 20250313
  Transmission Date: 20250409
  Serious: No
  Sender: SANDOZ
  Company Number: US-SANDOZ-SDZ2023US046370

PATIENT
  Age: 2 Year
  Sex: Female

DRUGS (4)
  1. OMNITROPE [Suspect]
     Active Substance: SOMATROPIN
     Indication: Prader-Willi syndrome
     Dosage: 0.2 MG 2 DOSE EVERY N/A N/A
     Route: 058
     Dates: start: 20230310
  2. OMNITROPE [Suspect]
     Active Substance: SOMATROPIN
     Indication: Prader-Willi syndrome
     Dosage: 0.2 MG 2 DOSE EVERY N/A N/A
     Route: 058
     Dates: start: 20230310
  3. OMNITROPE [Suspect]
     Active Substance: SOMATROPIN
     Route: 065
     Dates: start: 20250307
  4. OMNITROPE [Suspect]
     Active Substance: SOMATROPIN
     Route: 065
     Dates: start: 20250307

REACTIONS (4)
  - Device difficult to use [Unknown]
  - Product dose omission issue [Unknown]
  - Product packaging quantity issue [Unknown]
  - Circumstance or information capable of leading to medication error [Unknown]

NARRATIVE: CASE EVENT DATE: 20231020
